FAERS Safety Report 10223061 (Version 1)
Quarter: 2014Q2

REPORT INFORMATION
  Report Type: Spontaneous
  Country: DZ (occurrence: DZ)
  Receive Date: 20140607
  Receipt Date: 20140607
  Transmission Date: 20141212
  Serious: Yes (Hospitalization)
  Sender: FDA-Public Use
  Company Number: PHHY2014DZ066200

PATIENT
  Sex: Female

DRUGS (7)
  1. COTAREG [Suspect]
     Dosage: UNK UKN, UNK
  2. EXFORGE [Suspect]
     Indication: HYPERTENSION
     Dosage: 1 DF (80 MG VALS+5 MG AMLO), QD
     Route: 048
  3. FLAGYL [Concomitant]
     Dosage: UNK UKN, UNK
  4. GENTAMYCINE [Concomitant]
     Dosage: UNK UKN, UNK
  5. LOVENOX [Concomitant]
     Dosage: UNK UKN, UNK
  6. ATORVASTATIN [Concomitant]
     Dosage: UNK UKN, UNK
  7. AT B [Concomitant]
     Dosage: UNK UKN, UNK

REACTIONS (3)
  - Diabetic foot [Unknown]
  - Sodium retention [Recovering/Resolving]
  - Creatinine renal clearance decreased [Recovering/Resolving]
